FAERS Safety Report 10173055 (Version 1)
Quarter: 2014Q2

REPORT INFORMATION
  Report Type: Spontaneous
  Country: US (occurrence: None)
  Receive Date: 20140514
  Receipt Date: 20140514
  Transmission Date: 20141212
  Serious: No
  Sender: FDA-Public Use
  Company Number: None

PATIENT
  Age: 66 Year
  Sex: Female
  Weight: 89.81 kg

DRUGS (11)
  1. VICTOZA [Suspect]
     Indication: DIABETES MELLITUS
     Route: 058
     Dates: start: 20140401, end: 20140427
  2. GEMFIBROZIL [Concomitant]
  3. ASPIRIN [Concomitant]
  4. PLAVIX [Concomitant]
  5. HUMALOG [Concomitant]
  6. HUMILIN R [Concomitant]
  7. LOSARTAN [Concomitant]
  8. TOPROL XL [Concomitant]
  9. PRAVASTATIN [Concomitant]
  10. OMEPRAZOLE [Concomitant]
  11. QUINAPRIL [Concomitant]
     Indication: DIABETES MELLITUS
     Route: 058
     Dates: start: 20130401, end: 20130427

REACTIONS (1)
  - Pancreatitis [None]
